FAERS Safety Report 13952825 (Version 1)
Quarter: 2017Q3

REPORT INFORMATION
  Report Type: Spontaneous
  Country: US (occurrence: US)
  Receive Date: 20170911
  Receipt Date: 20170911
  Transmission Date: 20171128
  Serious: No
  Sender: FDA-Public Use
  Company Number: US-TEVA-790400USA

PATIENT
  Sex: Male

DRUGS (2)
  1. FENTANYL TRANSDERMAL SYSTEM [Suspect]
     Active Substance: FENTANYL
     Route: 065
     Dates: end: 201707
  2. FENTANYL TRANSDERMAL SYSTEM [Suspect]
     Active Substance: FENTANYL
     Indication: BACK PAIN
     Route: 065
     Dates: start: 2010

REACTIONS (12)
  - Back pain [Unknown]
  - Drug ineffective [Unknown]
  - Constipation [Unknown]
  - Withdrawal syndrome [Unknown]
  - Weight decreased [Unknown]
  - Pain in extremity [Unknown]
  - Feeling of body temperature change [Unknown]
  - Feeding disorder [Unknown]
  - Asthenia [Unknown]
  - Hyperhidrosis [Unknown]
  - Insomnia [Unknown]
  - Tremor [Unknown]
